FAERS Safety Report 4583528-3 (Version None)
Quarter: 2005Q1

REPORT INFORMATION
  Report Type: 
  Country: None (occurrence: None)
  Receive Date: 20050211
  Receipt Date: 20050202
  Transmission Date: 20050727
  Serious: Yes (Hospitalization, Other)
  Sender: FDA-Public Use
  Company Number: 2004069719

PATIENT
  Age: 44 Year
  Sex: Male
  Weight: 110 kg

DRUGS (6)
  1. TAHOR (ATORVASTATIN) [Suspect]
     Indication: ILL-DEFINED DISORDER
     Dosage: 10 MG (1 D)
     Dates: start: 20040301, end: 20040101
  2. BISOPROLOL FUMARATE [Concomitant]
  3. ACETYLSALICYLIC ACID SRT [Concomitant]
  4. RAMIPRIL [Concomitant]
  5. NITROGLYCERIN [Concomitant]
  6. CLOPIDOGREL BISULFATE [Concomitant]

REACTIONS (3)
  - CARDIAC DISORDER [None]
  - DISEASE RECURRENCE [None]
  - TENDON RUPTURE [None]
